FAERS Safety Report 7608892-X (Version None)
Quarter: 2011Q3

REPORT INFORMATION
  Report Type: 
  Country: None (occurrence: None)
  Receive Date: 20110713
  Receipt Date: 20110713
  Transmission Date: 20111222
  Serious: Yes (Other)
  Sender: FDA-Public Use
  Company Number: None

PATIENT
  Age: 55 Year
  Sex: Female
  Weight: 58.9676 kg

DRUGS (1)
  1. SIMVASTATIN [Suspect]
     Indication: CARDIAC DISORDER
     Dosage: 100MG 1 A DAY

REACTIONS (1)
  - SHOULDER OPERATION [None]
